FAERS Safety Report 4315308-8 (Version None)
Quarter: 2004Q1

REPORT INFORMATION
  Report Type: 
  Country: None (occurrence: None)
  Receive Date: 20040311
  Receipt Date: 20040305
  Transmission Date: 20041129
  Serious: Yes (Death)
  Sender: FDA-Public Use
  Company Number: 200410736EU

PATIENT
  Age: 56 Year
  Sex: Female

DRUGS (1)
  1. RIFADIN [Suspect]
     Indication: OSTEOMYELITIS
     Route: 042
     Dates: start: 20040224, end: 20040224

REACTIONS (1)
  - ANAPHYLACTIC SHOCK [None]
